FAERS Safety Report 11674870 (Version 2)
Quarter: 2015Q4

REPORT INFORMATION
  Report Type: Spontaneous
  Country: US (occurrence: US)
  Receive Date: 20151027
  Receipt Date: 20151110
  Transmission Date: 20160304
  Serious: No
  Sender: FDA-Public Use
  Company Number: US-ELI_LILLY_AND_COMPANY-US201006005090

PATIENT
  Sex: Female

DRUGS (4)
  1. FORTEO [Suspect]
     Active Substance: TERIPARATIDE
     Dosage: 20 UG, DAILY (1/D)
  2. CALCIUM [Concomitant]
     Active Substance: CALCIUM
     Dosage: 1 D/F, UNK
     Dates: start: 20100614
  3. FORTEO [Suspect]
     Active Substance: TERIPARATIDE
     Indication: OSTEOPOROSIS
     Dosage: 20 UG, DAILY (1/D)
     Dates: start: 20100428
  4. CALCIUM [Concomitant]
     Active Substance: CALCIUM
     Dosage: 2 D/F, UNK

REACTIONS (8)
  - Pain in jaw [Unknown]
  - Hypotension [Not Recovered/Not Resolved]
  - Tooth disorder [Unknown]
  - Hair colour changes [Unknown]
  - Pain [Recovered/Resolved]
  - Headache [Recovered/Resolved]
  - Blood calcium increased [Unknown]
  - Bone pain [Not Recovered/Not Resolved]
